FAERS Safety Report 6509195-7 (Version None)
Quarter: 2009Q4

REPORT INFORMATION
  Report Type: 
  Country: None (occurrence: None)
  Receive Date: 20091221
  Receipt Date: 20090115
  Transmission Date: 20100525
  Serious: No
  Sender: FDA-Public Use
  Company Number: US-TYCO HEALTHCARE/MALLINCKRODT-T200900071

PATIENT
  Sex: Male
  Weight: 104.31 kg

DRUGS (2)
  1. ULTRA-TECHNEKOW [Suspect]
     Dosage: UNK
     Dates: start: 20090115, end: 20090115
  2. MYOVIEW [Suspect]
     Dosage: UNK
     Dates: start: 20090115, end: 20090115

REACTIONS (1)
  - ACCIDENTAL EXPOSURE [None]
